FAERS Safety Report 13915233 (Version 2)
Quarter: 2017Q3

REPORT INFORMATION
  Report Type: Report from Study
  Country: JP (occurrence: JP)
  Receive Date: 20170829
  Receipt Date: 20170907
  Transmission Date: 20171127
  Serious: Yes (Hospitalization)
  Sender: FDA-Public Use
  Company Number: JP-ASTRAZENECA-2017SE87457

PATIENT
  Age: 20797 Day
  Sex: Male
  Weight: 41.7 kg

DRUGS (10)
  1. MAGMITT [Concomitant]
     Active Substance: MAGNESIUM OXIDE
     Indication: CONSTIPATION
     Dosage: 330.0MG AS REQUIRED
     Route: 048
     Dates: start: 20161118
  2. RANMARK [Concomitant]
     Active Substance: DENOSUMAB
     Indication: PROPHYLAXIS
     Route: 058
     Dates: start: 20170310
  3. DENOTAS [Concomitant]
     Active Substance: CALCIUM CARBONATE\CHOLECALCIFEROL\MAGNESIUM CARBONATE
     Indication: MINERAL SUPPLEMENTATION
     Route: 048
     Dates: start: 20160310
  4. DECADRON [Concomitant]
     Active Substance: DEXAMETHASONE
     Indication: ASTHENIA
     Route: 048
     Dates: start: 20170810
  5. SENNOSIDE [Concomitant]
     Active Substance: SENNOSIDES
     Indication: CONSTIPATION
     Dosage: 24.0MG AS REQUIRED
     Route: 048
     Dates: start: 20170105
  6. TARIVID [Concomitant]
     Active Substance: OFLOXACIN
     Indication: CORNEAL EROSION
     Dosage: OPTIMAL DOSE AS NEEDED
     Route: 047
  7. MIYA-BM [Concomitant]
     Active Substance: CLOSTRIDIUM BUTYRICUM SPORES STRAIN M-55
     Indication: DIARRHOEA
     Route: 048
     Dates: start: 20170427
  8. TAGRISSO [Suspect]
     Active Substance: OSIMERTINIB
     Indication: NON-SMALL CELL LUNG CANCER
     Route: 048
     Dates: start: 20170313, end: 20170819
  9. DERMOVATE [Concomitant]
     Active Substance: CLOBETASOL
     Indication: RASH
     Dosage: OPTIMAL DOSE AS NEEDED
     Route: 061
     Dates: start: 20170105
  10. MIYA-BM [Concomitant]
     Active Substance: CLOSTRIDIUM BUTYRICUM SPORES STRAIN M-55
     Indication: CONSTIPATION
     Route: 048
     Dates: start: 20170427

REACTIONS (1)
  - Urinary retention [Not Recovered/Not Resolved]

NARRATIVE: CASE EVENT DATE: 20170814
